FAERS Safety Report 21388809 (Version 1)
Quarter: 2022Q3

REPORT INFORMATION
  Report Type: Spontaneous
  Country: US (occurrence: None)
  Receive Date: 20220927
  Receipt Date: 20220927
  Transmission Date: 20221026
  Serious: No
  Sender: FDA-Public Use
  Company Number: None

PATIENT
  Age: 93 Year
  Sex: Female

DRUGS (2)
  1. DROXIDOPA [Suspect]
     Active Substance: DROXIDOPA
     Dosage: FREQUENCY : DAILY;?
     Route: 048
  2. DHA (OMEGA-3 FATTY ACIDS) [Suspect]
     Active Substance: OMEGA-3 FATTY ACIDS

REACTIONS (4)
  - Dizziness [None]
  - Fall [None]
  - Spinal fracture [None]
  - Rib fracture [None]

NARRATIVE: CASE EVENT DATE: 20220701
